FAERS Safety Report 4828099-9 (Version None)
Quarter: 2005Q4

REPORT INFORMATION
  Report Type: 
  Country: None (occurrence: None)
  Receive Date: 20051110
  Receipt Date: 20051031
  Transmission Date: 20060501
  Serious: Yes (Hospitalization, Other)
  Sender: FDA-Public Use
  Company Number: 2005149404

PATIENT
  Age: 83 Year
  Sex: Female

DRUGS (4)
  1. CELEBREX [Suspect]
     Indication: OSTEOARTHRITIS
     Dosage: 200 MG (200 MG, 1 IN 1 D), ORAL
     Route: 048
     Dates: end: 20050801
  2. CHOLESTEROL (CHOLESTEROL) [Concomitant]
  3. THYROID TAB [Concomitant]
  4. DIURETICS (DIURETICS) [Concomitant]

REACTIONS (4)
  - DECREASED ACTIVITY [None]
  - RASH GENERALISED [None]
  - RASH PRURITIC [None]
  - RENAL FAILURE [None]
